FAERS Safety Report 5310785-8 (Version None)
Quarter: 2007Q2

REPORT INFORMATION
  Report Type: 
  Country: None (occurrence: None)
  Receive Date: 20070428
  Receipt Date: 20070416
  Transmission Date: 20071010
  Serious: Yes (Death)
  Sender: FDA-Public Use
  Company Number: JP-PFIZER INC-2007019870

PATIENT
  Age: 80 Year
  Sex: Female

DRUGS (1)
  1. ZYVOX [Suspect]
     Dates: start: 20070227, end: 20070101

REACTIONS (3)
  - DEATH [None]
  - PLATELET COUNT DECREASED [None]
  - WHITE BLOOD CELL COUNT INCREASED [None]
